FAERS Safety Report 12249633 (Version 5)
Quarter: 2016Q2

REPORT INFORMATION
  Report Type: Spontaneous
  Country: US (occurrence: US)
  Receive Date: 20160408
  Receipt Date: 20160621
  Transmission Date: 20160815
  Serious: Yes (Death, Other)
  Sender: FDA-Public Use
  Company Number: US-TEVA-650678USA

PATIENT
  Age: 47 Year
  Sex: Female
  Weight: 118 kg

DRUGS (3)
  1. HYDROCODONE [Concomitant]
     Active Substance: HYDROCODONE
  2. ACETAMINOPHEN\HYDROCODONE BITARTRATE [Concomitant]
     Active Substance: ACETAMINOPHEN\HYDROCODONE BITARTRATE
  3. GABAPENTIN. [Suspect]
     Active Substance: GABAPENTIN
     Route: 065

REACTIONS (3)
  - Pneumonia [Fatal]
  - Toxicity to various agents [Fatal]
  - Respiratory depression [Fatal]
